FAERS Safety Report 8076346-5 (Version None)
Quarter: 2012Q1

REPORT INFORMATION
  Report Type: 
  Country: None (occurrence: None)
  Receive Date: 20120127
  Receipt Date: 20120119
  Transmission Date: 20120608
  Serious: Yes (Hospitalization)
  Sender: FDA-Public Use
  Company Number: US-BAYER-2011-051084

PATIENT
  Age: 24 Year
  Sex: Female
  Weight: 91 kg

DRUGS (5)
  1. YASMIN [Suspect]
     Indication: ORAL CONTRACEPTION
     Dosage: UNK
     Dates: start: 20030101, end: 20050101
  2. DROSPIRENONE AND ETHINYL ESTRADIOL [Suspect]
     Indication: ORAL CONTRACEPTION
     Dosage: UNK
     Dates: start: 20050101, end: 20110101
  3. OMEPRAZOLE [Concomitant]
  4. YAZ [Suspect]
     Indication: ORAL CONTRACEPTION
     Dosage: UNK
     Dates: start: 20030101, end: 20050101
  5. NITROFURANTOIN [Concomitant]

REACTIONS (8)
  - ABDOMINAL PAIN [None]
  - EMOTIONAL DISTRESS [None]
  - FEAR [None]
  - CHOLELITHIASIS [None]
  - BILIARY DYSKINESIA [None]
  - ANHEDONIA [None]
  - PAIN [None]
  - CHOLECYSTITIS CHRONIC [None]
